FAERS Safety Report 23515454 (Version 1)
Quarter: 2024Q1

REPORT INFORMATION
  Report Type: Spontaneous
  Country: CN (occurrence: CN)
  Receive Date: 20240213
  Receipt Date: 20240213
  Transmission Date: 20240410
  Serious: Yes (Hospitalization)
  Sender: FDA-Public Use
  Company Number: CN-SHANGHAI JUNSHI BIOSCIENCES CO., LTD.-CN2024009285

PATIENT

DRUGS (7)
  1. TORIPALIMAB [Suspect]
     Active Substance: TORIPALIMAB
     Indication: Oesophageal carcinoma
     Dosage: 240 MG
     Route: 041
     Dates: start: 20240103
  2. TORIPALIMAB [Suspect]
     Active Substance: TORIPALIMAB
     Dosage: 240 MG
     Route: 041
     Dates: start: 20240119, end: 20240119
  3. PACLITAXEL [Suspect]
     Active Substance: PACLITAXEL
     Indication: Oesophageal carcinoma
     Dosage: 330 MG (D1)
     Dates: start: 20231230
  4. PACLITAXEL [Suspect]
     Active Substance: PACLITAXEL
     Dosage: 330 MG (D1)
     Route: 041
     Dates: start: 20240120, end: 20240120
  5. CISPLATIN [Suspect]
     Active Substance: CISPLATIN
     Indication: Oesophageal carcinoma
     Dosage: 50 MG (D1-D2), QD
     Route: 041
     Dates: start: 20240122, end: 20240123
  6. NEDAPLATIN [Concomitant]
     Active Substance: NEDAPLATIN
     Indication: Oesophageal carcinoma
     Dosage: 110 MG (D2)
     Dates: start: 20231230
  7. NEDAPLATIN [Concomitant]
     Active Substance: NEDAPLATIN
     Dosage: 110 MG (D2)
     Dates: start: 20240121, end: 20240121

REACTIONS (2)
  - Myelosuppression [Recovering/Resolving]
  - Off label use [Unknown]

NARRATIVE: CASE EVENT DATE: 20240103
